FAERS Safety Report 5401013-3 (Version None)
Quarter: 2007Q3

REPORT INFORMATION
  Report Type: 
  Country: None (occurrence: None)
  Receive Date: 20070730
  Receipt Date: 20070720
  Transmission Date: 20080115
  Serious: Yes (Death, Other)
  Sender: FDA-Public Use
  Company Number: US-ABBOTT-07P-163-0375462-00

PATIENT
  Sex: Female

DRUGS (1)
  1. HUMIRA [Suspect]
     Indication: RHEUMATOID ARTHRITIS
     Route: 058

REACTIONS (6)
  - ARTHRALGIA [None]
  - ARTHRITIS INFECTIVE [None]
  - JOINT INJURY [None]
  - MENINGITIS [None]
  - PNEUMONIA STREPTOCOCCAL [None]
  - SEPSIS [None]
